FAERS Safety Report 7355511-6 (Version None)
Quarter: 2011Q1

REPORT INFORMATION
  Report Type: 
  Country: None (occurrence: None)
  Receive Date: 20110316
  Receipt Date: 20110309
  Transmission Date: 20110831
  Serious: Yes (Hospitalization)
  Sender: FDA-Public Use
  Company Number: A0917379A

PATIENT
  Age: 66 Year
  Sex: Female

DRUGS (21)
  1. CELEBREX [Concomitant]
  2. NEXIUM [Concomitant]
  3. UNSPECIFIED MEDICATION [Concomitant]
  4. PROAIR HFA [Concomitant]
  5. ADVAIR DISKUS 100/50 [Suspect]
     Indication: CHRONIC OBSTRUCTIVE PULMONARY DISEASE
     Dosage: 1PUFF TWICE PER DAY
     Route: 055
     Dates: start: 20080101
  6. LISINOPRIL [Concomitant]
  7. ALLEGRA [Concomitant]
  8. FUROSEMIDE [Concomitant]
  9. HYDROCODONE BITARTRATE [Concomitant]
  10. XOPENEX [Concomitant]
  11. POTASSIUM [Concomitant]
  12. CITALOPRAM HYDROBROMIDE [Concomitant]
  13. LEVOTHYROXINE [Concomitant]
  14. SINGULAIR [Concomitant]
  15. TRAZODONE [Concomitant]
  16. BUTALBITAL [Concomitant]
  17. NASACORT [Concomitant]
  18. PREDNISONE [Concomitant]
  19. SULFASALAZINE [Concomitant]
  20. AMBIEN [Concomitant]
  21. GABAPENTIN [Concomitant]

REACTIONS (6)
  - BREAST CANCER [None]
  - RED BLOOD CELL SEDIMENTATION RATE INCREASED [None]
  - BODY HEIGHT DECREASED [None]
  - PAIN [None]
  - TENDON DISORDER [None]
  - GAIT DISTURBANCE [None]
